FAERS Safety Report 7543322-8 (Version None)
Quarter: 2011Q2

REPORT INFORMATION
  Report Type: 
  Country: None (occurrence: None)
  Receive Date: 20110613
  Receipt Date: 20110607
  Transmission Date: 20111010
  Serious: Yes (Other)
  Sender: FDA-Public Use
  Company Number: US-JNJFOC-20110604402

PATIENT
  Sex: Female

DRUGS (2)
  1. DIPHENHYDRAMINE HCL [Suspect]
     Route: 048
  2. DIPHENHYDRAMINE HCL [Suspect]
     Indication: ARTHROPOD BITE
     Dosage: FOR ABOUT A WEEK
     Route: 048
     Dates: start: 20110601

REACTIONS (3)
  - DEPRESSION [None]
  - FATIGUE [None]
  - OFF LABEL USE [None]
